FAERS Safety Report 19687541 (Version 2)
Quarter: 2021Q3

REPORT INFORMATION
  Report Type: Report from Study
  Country: None (occurrence: CA)
  Receive Date: 20210812
  Receipt Date: 20210912
  Transmission Date: 20211014
  Serious: Yes (Other)
  Sender: FDA-Public Use
  Company Number: CA-ABBVIE-21K-028-4034129-00

PATIENT
  Age: 58 Year
  Sex: Female

DRUGS (1)
  1. HUMIRA [Suspect]
     Active Substance: ADALIMUMAB
     Indication: CROHN^S DISEASE
     Route: 058
     Dates: start: 20161221, end: 20210629

REACTIONS (4)
  - Fatigue [Recovering/Resolving]
  - Bone graft [Not Recovered/Not Resolved]
  - Infection [Not Recovered/Not Resolved]
  - Post procedural swelling [Not Recovered/Not Resolved]

NARRATIVE: CASE EVENT DATE: 202107
